FAERS Safety Report 5716487-8 (Version None)
Quarter: 2008Q2

REPORT INFORMATION
  Report Type: 
  Country: None (occurrence: None)
  Receive Date: 20080424
  Receipt Date: 20080417
  Transmission Date: 20081010
  Serious: No
  Sender: FDA-Public Use
  Company Number: US-BAXTER-2008BH003154

PATIENT
  Age: 23 Year
  Sex: Female
  Weight: 76 kg

DRUGS (4)
  1. HEPARIN SODIUM [Suspect]
     Indication: COAGULOPATHY
     Route: 058
     Dates: start: 20070101, end: 20070101
  2. HEPARIN SODIUM [Suspect]
     Route: 058
     Dates: start: 20070101, end: 20070101
  3. HEPARIN SODIUM [Suspect]
     Dates: start: 20070101, end: 20080201
  4. ADVAIR HFA [Concomitant]
     Indication: ASTHMA
     Dosage: DOSE UNIT:UNKNOWN
     Route: 065

REACTIONS (6)
  - ABDOMINAL DISCOMFORT [None]
  - CHILLS [None]
  - DIARRHOEA [None]
  - DIZZINESS [None]
  - DRUG EXPOSURE DURING PREGNANCY [None]
  - NAUSEA [None]
